FAERS Safety Report 25890097 (Version 1)
Quarter: 2025Q4

REPORT INFORMATION
  Report Type: Spontaneous
  Country: EU (occurrence: EU)
  Receive Date: 20251007
  Receipt Date: 20251007
  Transmission Date: 20260117
  Serious: Yes (Hospitalization)
  Sender: RANBAXY
  Company Number: EU-SUN PHARMACEUTICAL INDUSTRIES LTD-2025RR-530204

PATIENT
  Age: 78 Year
  Sex: Male

DRUGS (6)
  1. CIPROFLOXACIN [Interacting]
     Active Substance: CIPROFLOXACIN
     Indication: Arthritis infective
     Dosage: 2 GRAM, DAILY
     Route: 048
     Dates: start: 20250116, end: 20250219
  2. CEFTAZIDIME [Interacting]
     Active Substance: CEFTAZIDIME
     Indication: Arthritis infective
     Dosage: 6 GRAM, DAILY
     Route: 040
     Dates: start: 20250109, end: 20250115
  3. HYDROCHLOROTHIAZIDE\LOSARTAN [Interacting]
     Active Substance: HYDROCHLOROTHIAZIDE\LOSARTAN
     Indication: Hypertension
     Dosage: 1 DOSAGE FORM, DAILY
     Route: 048
     Dates: start: 20180326, end: 20250211
  4. ASPIRIN [Interacting]
     Active Substance: ASPIRIN
     Indication: Product used for unknown indication
     Dosage: 100 MILLIGRAM, DAILY
     Route: 048
     Dates: start: 20250211, end: 202503
  5. AMLODIPINE BESYLATE [Concomitant]
     Active Substance: AMLODIPINE BESYLATE
     Indication: Hypertension
     Dosage: 10 MILLIGRAM, DAILY
     Route: 048
     Dates: start: 20241016
  6. ATORVASTATIN [Concomitant]
     Active Substance: ATORVASTATIN
     Indication: Hyperlipidaemia
     Dosage: 40 MILLIGRAM, DAILY
     Route: 048
     Dates: start: 20250211

REACTIONS (1)
  - Renal tubular necrosis [Recovered/Resolved]

NARRATIVE: CASE EVENT DATE: 20250219
